FAERS Safety Report 6839173-X (Version None)
Quarter: 2010Q2

REPORT INFORMATION
  Report Type: 
  Country: None (occurrence: None)
  Receive Date: 20100625
  Receipt Date: 20090731
  Transmission Date: 20101027
  Serious: Yes (Other)
  Sender: FDA-Public Use
  Company Number: VISP-PR-0907S-0345

PATIENT
  Age: 68 Year
  Sex: Male

DRUGS (6)
  1. VISIPAQUE [Suspect]
     Indication: PROSTATE CANCER
     Dosage: 100 ML, SINGLE DOSE, I.V.
     Route: 042
     Dates: start: 20090717, end: 20090717
  2. EPINEPHRINE [Concomitant]
  3. METOPROLOL [Concomitant]
  4. AMLODIPINE AND VALSARTAN (EXFORGE) [Concomitant]
  5. LOVASTATIN [Concomitant]
  6. AMLODIPINE [Concomitant]

REACTIONS (5)
  - ANAPHYLACTOID REACTION [None]
  - CONVULSION [None]
  - DYSPNOEA [None]
  - GENERALISED OEDEMA [None]
  - RASH GENERALISED [None]
